FAERS Safety Report 22006594 (Version 2)
Quarter: 2023Q1

REPORT INFORMATION
  Report Type: Spontaneous
  Country: US (occurrence: US)
  Receive Date: 20230217
  Receipt Date: 20230224
  Transmission Date: 20230417
  Serious: Yes (Life-Threatening, Other)
  Sender: FDA-Public Use
  Company Number: US-FreseniusKabi-FK202301937

PATIENT
  Age: 66 Year
  Sex: Male
  Weight: 62.7 kg

DRUGS (2)
  1. PROTAMINE SULFATE [Suspect]
     Active Substance: PROTAMINE SULFATE
     Indication: Product used for unknown indication
     Dosage: GIVEN OVER 10 MINS?EXACT HOUR/MINUTE PROTAMINE WAS GIVEN: 14:15?14:25
     Route: 042
     Dates: start: 20230206
  2. HEPARIN [Concomitant]
     Active Substance: HEPARIN SODIUM
     Indication: Product used for unknown indication
     Dosage: 26000 AT 11:39, GIVEN HEPARIN DURING LEFT HEART CATHERIZATION
     Dates: start: 20230206

REACTIONS (1)
  - Hypotension [Recovered/Resolved]

NARRATIVE: CASE EVENT DATE: 20230206
